FAERS Safety Report 4505467-6 (Version None)
Quarter: 2004Q4

REPORT INFORMATION
  Report Type: 
  Country: None (occurrence: None)
  Receive Date: 20041118
  Receipt Date: 20041104
  Transmission Date: 20050328
  Serious: Yes (Hospitalization)
  Sender: FDA-Public Use
  Company Number: 2004-DE-05701GD

PATIENT
  Sex: Female

DRUGS (4)
  1. IBUPROFEN [Suspect]
     Dosage: PO
     Route: 048
  2. LORAZEPAM [Suspect]
     Dosage: PO
     Route: 048
  3. PSEUDOEPHEDRINE HCL [Suspect]
     Dosage: PO
     Route: 048
  4. NARDIL [Suspect]
     Dosage: PO
     Route: 048

REACTIONS (2)
  - COMA [None]
  - LETHARGY [None]
